FAERS Safety Report 8593967-1 (Version None)
Quarter: 2012Q3

REPORT INFORMATION
  Report Type: 
  Country: None (occurrence: None)
  Receive Date: 20120814
  Receipt Date: 20120809
  Transmission Date: 20120928
  Serious: Yes (Hospitalization, Other)
  Sender: FDA-Public Use
  Company Number: VE-PFIZER INC-2012170912

PATIENT
  Age: 80 Year
  Sex: Female

DRUGS (4)
  1. LIPITOR [Suspect]
     Indication: HYPERCHOLESTEROLAEMIA
     Dosage: 40 MG, 1X/DAY
     Route: 048
  2. SINEMET [Concomitant]
     Dosage: 50/200 MG 1X/DAY
     Route: 048
  3. NEXIUM [Concomitant]
     Dosage: 40 MG, 1X/DAY
     Route: 048
  4. HYZAAR [Concomitant]
     Dosage: 100/25 MG 1X/DAY
     Route: 048

REACTIONS (3)
  - PARKINSON'S DISEASE [None]
  - PULMONARY OEDEMA [None]
  - SEPSIS [None]
